FAERS Safety Report 8925060 (Version 7)
Quarter: 2015Q1

REPORT INFORMATION
  Report Type: Report from Study
  Country: GB (occurrence: GB)
  Receive Date: 20121126
  Receipt Date: 20150331
  Transmission Date: 20150721
  Serious: Yes (Other)
  Sender: FDA-Public Use
  Company Number: GB-ROCHE-1159593

PATIENT
  Age: 24 Year
  Sex: Male
  Weight: 87.4 kg

DRUGS (2)
  1. COCODAMOL [Concomitant]
     Active Substance: ACETAMINOPHEN\CODEINE PHOSPHATE
     Dosage: 30/500 MG TOTAL DAILY DOSE
     Route: 065
     Dates: start: 20111222
  2. VEMURAFENIB [Suspect]
     Active Substance: VEMURAFENIB
     Indication: MALIGNANT MELANOMA
     Dosage: DATE OF LAST DOSE PRIOR TO SAE: 26/7/2012
     Route: 048
     Dates: start: 20120116

REACTIONS (1)
  - Mycosis fungoides [Recovered/Resolved]

NARRATIVE: CASE EVENT DATE: 20120726
